FAERS Safety Report 15862816 (Version 1)
Quarter: 2018Q4

REPORT INFORMATION
  Report Type: Spontaneous
  Country: US (occurrence: US)
  Receive Date: 20181231
  Receipt Date: 20181231
  Transmission Date: 20190205
  Serious: Yes (Hospitalization)
  Sender: FDA-Public Use
  Company Number: None

PATIENT
  Age: 77 Year
  Sex: Male
  Weight: 99 kg

DRUGS (1)
  1. APIXABAN [Suspect]
     Active Substance: APIXABAN
     Indication: ATRIAL FIBRILLATION
     Route: 048
     Dates: start: 20171026

REACTIONS (10)
  - Vomiting [None]
  - Alcohol use [None]
  - Dizziness [None]
  - Acute kidney injury [None]
  - Occult blood positive [None]
  - Confusional state [None]
  - Haemorrhoidal haemorrhage [None]
  - Dyspnoea [None]
  - Nausea [None]
  - Haematochezia [None]

NARRATIVE: CASE EVENT DATE: 20181113
